FAERS Safety Report 9437577 (Version 2)
Quarter: 2013Q4

REPORT INFORMATION
  Report Type: Other
  Country: US (occurrence: US)
  Receive Date: 20130802
  Receipt Date: 20131016
  Transmission Date: 20140711
  Serious: Yes (Other)
  Sender: FDA-Public Use
  Company Number: US-SHIRE-ALL1-2013-05077

PATIENT
  Age: 53 Year
  Sex: Male
  Weight: 127 kg

DRUGS (4)
  1. VPRIV [Suspect]
     Indication: GAUCHER^S DISEASE
     Dosage: UNK, UNKNOWN
     Route: 041
     Dates: start: 20110513
  2. MVI [Concomitant]
     Indication: ROUTINE HEALTH MAINTENANCE
     Dosage: UNK, 1X/DAY:QD
     Route: 065
  3. ALEVE [Concomitant]
     Indication: PAIN
     Dosage: UNK, AS REQ^D
     Route: 065
  4. HYDROCODONE/APAP [Concomitant]
     Indication: PAIN
     Dosage: UNK, AS REQ^D
     Route: 065

REACTIONS (1)
  - Pancreatic mass [Not Recovered/Not Resolved]
